FAERS Safety Report 17043147 (Version 8)
Quarter: 2021Q3

REPORT INFORMATION
  Report Type: Spontaneous
  Country: US (occurrence: US)
  Receive Date: 20191118
  Receipt Date: 20210910
  Transmission Date: 20211014
  Serious: No
  Sender: FDA-Public Use
  Company Number: US-PFIZER INC-2019415836

PATIENT
  Age: 63 Year
  Sex: Female

DRUGS (2)
  1. RELPAX [Suspect]
     Active Substance: ELETRIPTAN HYDROBROMIDE
     Indication: VASCULAR HEADACHE
  2. RELPAX [Suspect]
     Active Substance: ELETRIPTAN HYDROBROMIDE
     Indication: MIGRAINE
     Dosage: 40 MG, AS NEEDED (MAY REPEAT IN 1 HOUR)
     Route: 048

REACTIONS (3)
  - Therapeutic product effect incomplete [Unknown]
  - Product use issue [Unknown]
  - Off label use [Unknown]
